FAERS Safety Report 7404955-2 (Version None)
Quarter: 2011Q2

REPORT INFORMATION
  Report Type: 
  Country: None (occurrence: None)
  Receive Date: 20110411
  Receipt Date: 20110330
  Transmission Date: 20111010
  Serious: Yes (Other)
  Sender: FDA-Public Use
  Company Number: CA-ELI_LILLY_AND_COMPANY-CA201104000100

PATIENT
  Age: 51 Year
  Sex: Female

DRUGS (25)
  1. PEDIAPRED [Concomitant]
     Dosage: 20 MG, UNK
  2. AVAPRO [Concomitant]
     Dosage: 150 MG, BID
  3. ASCORBIC ACID [Concomitant]
     Dosage: UNK, 2/W
     Route: 042
  4. SERC                               /00034201/ [Concomitant]
     Dosage: 32 MG, QD
  5. ZYTRAM XL [Concomitant]
     Dosage: 200 MG, BID
  6. KETOCONAZOLE [Concomitant]
     Dosage: 200 MG, QD
  7. VITAMIN A [Concomitant]
     Dosage: UNK, 2/W
     Route: 042
  8. CALCIUM [Concomitant]
     Dosage: UNK, 2/W
     Route: 042
  9. IMITREX [Concomitant]
     Dosage: UNK, PRN
  10. PRASTERONE [Concomitant]
     Dosage: 10 MG, QD
  11. FLU [Concomitant]
  12. FORTEO [Suspect]
     Indication: OSTEOPOROSIS
     Dosage: 20 MG, QD
     Route: 058
     Dates: start: 20101004
  13. ESTRADERM [Concomitant]
     Dosage: 0.39 MG (1 PATCH) EVERY 3 DAYS
  14. GABAPENTIN [Concomitant]
     Dosage: 500 MG, QD
  15. STEMETIL [Concomitant]
     Dosage: UNK, PRN
  16. TEGRETOL [Concomitant]
     Dosage: 800 MG, QD
  17. VITAMIN B COMPLEX CAP [Concomitant]
     Dosage: UNK, 2/M
     Route: 042
  18. VICTOZA [Concomitant]
     Dosage: 0.6 MG, QD
  19. ZOFRAN [Concomitant]
     Dosage: 8 MG, PRN
  20. CALCIUM [Concomitant]
     Dosage: 650 MG, EVERY 3 DAYS
  21. CRANBERRY [Concomitant]
     Dosage: 2400 MG, 6 OD
  22. PLAQUENIL [Concomitant]
     Dosage: 400 MG, QD
  23. APIDRA [Concomitant]
     Dosage: 15 IU, QD
  24. VITAMIN D [Concomitant]
     Dosage: 3000 IU, QD
  25. TAMIFLU [Concomitant]
     Dosage: 75 MG, BID
     Dates: start: 20100903, end: 20101005

REACTIONS (4)
  - LOSS OF CONSCIOUSNESS [None]
  - FALL [None]
  - COMPRESSION FRACTURE [None]
  - HEAD INJURY [None]
